FAERS Safety Report 5403652-2 (Version None)
Quarter: 2007Q3

REPORT INFORMATION
  Report Type: 
  Country: None (occurrence: None)
  Receive Date: 20070802
  Receipt Date: 20070729
  Transmission Date: 20080115
  Serious: Yes (Death, Hospitalization, Other)
  Sender: FDA-Public Use
  Company Number: PHEH2005US13498

PATIENT
  Age: 80 Year
  Sex: Female

DRUGS (2)
  1. GLEEVEC [Suspect]
     Indication: CHRONIC MYELOID LEUKAEMIA
     Dosage: UNK, QD
     Route: 048
     Dates: end: 20061221
  2. INSULIN [Concomitant]
     Dosage: UNK, PRN
     Route: 058

REACTIONS (18)
  - ASTHENIA [None]
  - BACK PAIN [None]
  - BLAST CRISIS IN MYELOGENOUS LEUKAEMIA [None]
  - CARDIAC FAILURE [None]
  - CEREBROVASCULAR ACCIDENT [None]
  - COLONOSCOPY ABNORMAL [None]
  - DEATH [None]
  - DIABETES MELLITUS [None]
  - DYSPNOEA [None]
  - GASTROINTESTINAL HAEMORRHAGE [None]
  - HAEMATEMESIS [None]
  - HAEMORRHOIDS [None]
  - LASER THERAPY [None]
  - MALIGNANT TUMOUR EXCISION [None]
  - MYOCARDIAL INFARCTION [None]
  - PNEUMONIA [None]
  - POLYP [None]
  - VAGINAL HAEMORRHAGE [None]
